FAERS Safety Report 15297116 (Version 1)
Quarter: 2018Q3

REPORT INFORMATION
  Report Type: Spontaneous
  Country: IT (occurrence: IT)
  Receive Date: 20180820
  Receipt Date: 20180820
  Transmission Date: 20181010
  Serious: Yes (Other)
  Sender: FDA-Public Use
  Company Number: IT-SA-2018SA217520

PATIENT
  Age: 94 Year
  Sex: Female

DRUGS (4)
  1. DEFLAN [Concomitant]
     Active Substance: DEFLAZACORT
  2. ZOLPIDEM TARTRATE. [Suspect]
     Active Substance: ZOLPIDEM TARTRATE
     Indication: DRUG ABUSE
     Route: 048
     Dates: start: 20180624, end: 20180624
  3. CONGESCOR [Concomitant]
     Active Substance: BISOPROLOL
  4. CONDRAL [CHONDROITIN SULFATE] [Concomitant]

REACTIONS (2)
  - Drug dependence [Unknown]
  - Dyskinesia [Recovering/Resolving]

NARRATIVE: CASE EVENT DATE: 20180624
